FAERS Safety Report 4896898-3 (Version None)
Quarter: 2006Q1

REPORT INFORMATION
  Report Type: 
  Country: None (occurrence: None)
  Receive Date: 20060126
  Receipt Date: 20060112
  Transmission Date: 20060701
  Serious: Yes (Hospitalization)
  Sender: FDA-Public Use
  Company Number: 02100-JPN-05-0611

PATIENT
  Age: 74 Year
  Sex: Male

DRUGS (5)
  1. CILOSTAZOL [Suspect]
     Indication: LACUNAR INFARCTION
     Dosage: 200 MG
     Route: 048
     Dates: start: 20040107, end: 20051109
  2. LISINOPRIL [Concomitant]
  3. MOSAPRIDE CITRATE [Concomitant]
  4. NIFEDIPINE [Concomitant]
  5. ALLOPURINOL [Concomitant]

REACTIONS (1)
  - GASTRIC ULCER HAEMORRHAGE [None]
